FAERS Safety Report 17069454 (Version 1)
Quarter: 2019Q4

REPORT INFORMATION
  Report Type: Report from Study
  Country: None (occurrence: AR)
  Receive Date: 20191125
  Receipt Date: 20191125
  Transmission Date: 20200122
  Serious: Yes (Hospitalization)
  Sender: FDA-Public Use
  Company Number: AR-ABBVIE-19K-007-3014023-00

PATIENT
  Age: 63 Year
  Sex: Female

DRUGS (1)
  1. HUMIRA [Suspect]
     Active Substance: ADALIMUMAB
     Indication: CROHN^S DISEASE
     Route: 058
     Dates: start: 20190712

REACTIONS (3)
  - Ulcer haemorrhage [Not Recovered/Not Resolved]
  - Malnutrition [Unknown]
  - Anaemia [Unknown]

NARRATIVE: CASE EVENT DATE: 20191105
